FAERS Safety Report 21282807 (Version 4)
Quarter: 2022Q3

REPORT INFORMATION
  Report Type: Spontaneous
  Country: CN (occurrence: None)
  Receive Date: 20220901
  Receipt Date: 20220923
  Transmission Date: 20221027
  Serious: Yes (Death, Life-Threatening, Other)
  Sender: FDA-Public Use
  Company Number: 2022A299818

PATIENT
  Age: 49 Year
  Sex: Female

DRUGS (2)
  1. TAGRISSO [Suspect]
     Active Substance: OSIMERTINIB
     Route: 048
     Dates: start: 20210329
  2. TAGRISSO [Suspect]
     Active Substance: OSIMERTINIB
     Dosage: DOUBLE DOSE OF 160MG
     Route: 048

REACTIONS (14)
  - Brain herniation [Unknown]
  - Pulmonary embolism [Unknown]
  - Haemorrhage intracranial [Unknown]
  - Cardiogenic shock [Fatal]
  - Cardiomyopathy [Fatal]
  - Circulatory collapse [Fatal]
  - Acute respiratory failure [Fatal]
  - Lactic acidosis [Fatal]
  - Metabolic acidosis [Fatal]
  - Acute pulmonary oedema [Fatal]
  - Intentional product use issue [Fatal]
  - Cardiotoxicity [Unknown]
  - Left ventricular failure [Fatal]
  - Intracranial tumour haemorrhage [Unknown]
